FAERS Safety Report 20590265 (Version 1)
Quarter: 2022Q1

REPORT INFORMATION
  Report Type: Spontaneous
  Country: CA (occurrence: CA)
  Receive Date: 20220314
  Receipt Date: 20220314
  Transmission Date: 20220423
  Serious: Yes (Life-Threatening, Other)
  Sender: FDA-Public Use
  Company Number: CA-PFIZER INC-202200358526

PATIENT

DRUGS (6)
  1. BUPIVACAINE HYDROCHLORIDE [Suspect]
     Active Substance: BUPIVACAINE HYDROCHLORIDE
     Indication: Analgesic therapy
     Dosage: 6 ML, AS NEEDED
     Route: 064
  2. FENTANYL [Suspect]
     Active Substance: FENTANYL
     Indication: Analgesic therapy
     Dosage: UNK, AS NEEDED
     Route: 064
  3. LENTE INSULIN NOS [Concomitant]
     Active Substance: INSULIN NOS
     Dosage: UNK
     Route: 064
  4. IRON [Concomitant]
     Active Substance: IRON
     Dosage: UNK
     Route: 064
  5. OXYTOCIN [Concomitant]
     Active Substance: OXYTOCIN
     Route: 064
  6. MINERALS\VITAMINS [Concomitant]
     Active Substance: MINERALS\VITAMINS
     Route: 064

REACTIONS (2)
  - Bradycardia foetal [Recovered/Resolved]
  - Post procedural hypotension [Recovered/Resolved]
